FAERS Safety Report 16000847 (Version 3)
Quarter: 2019Q2

REPORT INFORMATION
  Report Type: Spontaneous
  Country: CZ (occurrence: CZ)
  Receive Date: 20190225
  Receipt Date: 20190511
  Transmission Date: 20190711
  Serious: Yes (Hospitalization, Other)
  Sender: FDA-Public Use
  Company Number: CZ-BRISTOL-MYERS SQUIBB COMPANY-BMS-2019-016914

PATIENT
  Age: 54 Year
  Sex: Male

DRUGS (4)
  1. EUPHYLLIN                          /00003701/ [Concomitant]
     Active Substance: AMINOPHYLLINE
     Indication: CHRONIC OBSTRUCTIVE PULMONARY DISEASE
     Dosage: 200 MILLIGRAM, BID
     Route: 065
  2. ZOLEDRONIC ACID. [Concomitant]
     Active Substance: ZOLEDRONIC ACID
     Indication: PRODUCT USED FOR UNKNOWN INDICATION
     Dosage: 4 MILLIGRAM
     Route: 042
     Dates: start: 20180327
  3. FENTANYL. [Concomitant]
     Active Substance: FENTANYL
     Indication: PRODUCT USED FOR UNKNOWN INDICATION
     Dosage: UNK
     Route: 065
     Dates: start: 20180327
  4. NIVOLUMAB [Suspect]
     Active Substance: NIVOLUMAB
     Indication: ADENOCARCINOMA
     Dosage: 198 MILLIGRAM, Q2WK
     Route: 042
     Dates: start: 20180404, end: 20180919

REACTIONS (5)
  - Monoparesis [Not Recovered/Not Resolved]
  - Autoimmune thyroiditis [Recovered/Resolved]
  - Neuropathy peripheral [Unknown]
  - Facial paralysis [Not Recovered/Not Resolved]
  - Hypoaesthesia [Unknown]

NARRATIVE: CASE EVENT DATE: 20180919
